FAERS Safety Report 10213593 (Version 1)
Quarter: 2014Q2

REPORT INFORMATION
  Report Type: Spontaneous
  Country: US (occurrence: None)
  Receive Date: 20140602
  Receipt Date: 20140602
  Transmission Date: 20141212
  Serious: No
  Sender: FDA-Public Use
  Company Number: None

PATIENT
  Age: 47 Year
  Sex: Female
  Weight: 72.58 kg

DRUGS (1)
  1. AMPHETAMINE SALTS [Suspect]
     Indication: ATTENTION DEFICIT/HYPERACTIVITY DISORDER
     Dosage: 10X2 DAILY?TWICE DAILY?TAKEN BY MOUTH
     Route: 048
     Dates: start: 20140306

REACTIONS (7)
  - Headache [None]
  - Feeling abnormal [None]
  - Visual impairment [None]
  - Peripheral coldness [None]
  - Paranoia [None]
  - Hypersomnia [None]
  - Product substitution issue [None]
